FAERS Safety Report 4326241-X (Version None)
Quarter: 2004Q1

REPORT INFORMATION
  Report Type: 
  Country: None (occurrence: None)
  Receive Date: 20040324
  Receipt Date: 20040315
  Transmission Date: 20041129
  Serious: Yes (Life-Threatening, Hospitalization)
  Sender: FDA-Public Use
  Company Number: GBWYE646117MAR04

PATIENT
  Age: 61 Year
  Sex: Male

DRUGS (4)
  1. RAPAMUNE [Suspect]
     Indication: IMMUNOSUPPRESSION
     Dosage: 1 MG 1X PER 1 DAY ORAL
     Route: 048
     Dates: start: 20031018, end: 20040211
  2. AZATHIOPRINE [Concomitant]
  3. VALGANCICLOVIR [Concomitant]
  4. AMLODIPINE [Concomitant]

REACTIONS (4)
  - IMMUNOSUPPRESSANT DRUG LEVEL DECREASED [None]
  - MULTI-ORGAN FAILURE [None]
  - PNEUMONITIS [None]
  - RESPIRATORY FAILURE [None]
